FAERS Safety Report 5725630-6 (Version None)
Quarter: 2008Q2

REPORT INFORMATION
  Report Type: 
  Country: None (occurrence: None)
  Receive Date: 20080501
  Receipt Date: 20080423
  Transmission Date: 20081010
  Serious: Yes (Hospitalization)
  Sender: FDA-Public Use
  Company Number: CA-BOEHRINGER INGELHEIM GMBH, GERMANY-2008-CN-00174CN

PATIENT
  Age: 91 Year
  Sex: Female

DRUGS (7)
  1. AGGRENOX [Suspect]
     Indication: CEREBROVASCULAR ACCIDENT PROPHYLAXIS
     Route: 048
     Dates: start: 20050101
  2. METOPROLOL TARTRATE [Concomitant]
  3. ASPIRIN [Concomitant]
  4. METFORMIN HCL [Concomitant]
  5. ALOPURINOL [Concomitant]
  6. SYNTHROID [Concomitant]
  7. NOVAMILOR [Concomitant]

REACTIONS (2)
  - ANGIOEDEMA [None]
  - MACROGLOSSIA [None]
